FAERS Safety Report 21682165 (Version 1)
Quarter: 2022Q4

REPORT INFORMATION
  Report Type: Spontaneous
  Country: CA (occurrence: CA)
  Receive Date: 20221205
  Receipt Date: 20221205
  Transmission Date: 20230113
  Serious: Yes (Hospitalization, Other)
  Sender: FDA-Public Use
  Company Number: CA-ABBVIE-4223753

PATIENT
  Age: 46 Year
  Sex: Female

DRUGS (10)
  1. HUMIRA [Suspect]
     Active Substance: ADALIMUMAB
     Indication: Crohn^s disease
     Route: 058
  2. CIPROFLOXACIN [Concomitant]
     Active Substance: CIPROFLOXACIN
     Indication: Product used for unknown indication
     Dates: start: 20221119
  3. METHOTREXATE [Suspect]
     Active Substance: METHOTREXATE
     Indication: Product used for unknown indication
     Route: 065
  4. REMICADE [Concomitant]
     Active Substance: INFLIXIMAB
     Indication: Product used for unknown indication
  5. FLAGYL [Concomitant]
     Active Substance: METRONIDAZOLE\METRONIDAZOLE HYDROCHLORIDE
     Indication: Product used for unknown indication
     Dates: start: 20221119
  6. ENTYVIO [Suspect]
     Active Substance: VEDOLIZUMAB
     Indication: Product used for unknown indication
     Route: 065
     Dates: start: 2017
  7. OCTREOTIDE [Concomitant]
     Active Substance: OCTREOTIDE
     Indication: Product used for unknown indication
     Dates: start: 2012
  8. INFLIXIMAB [Suspect]
     Active Substance: INFLIXIMAB
     Indication: Product used for unknown indication
     Route: 065
  9. PREDNISONE [Concomitant]
     Active Substance: PREDNISONE
     Indication: Product used for unknown indication
     Dates: start: 2011
  10. IMURAN [Concomitant]
     Active Substance: AZATHIOPRINE
     Indication: Product used for unknown indication

REACTIONS (18)
  - Anal fistula [Unknown]
  - Ileostomy [Unknown]
  - Intestinal obstruction [Unknown]
  - Intestinal resection [Unknown]
  - Drug ineffective [Unknown]
  - Abdominal pain lower [Unknown]
  - Anal fistula [Not Recovered/Not Resolved]
  - Anal fistula [Not Recovered/Not Resolved]
  - Intestinal dilatation [Unknown]
  - Musculoskeletal stiffness [Unknown]
  - Off label use [Unknown]
  - Gastrointestinal wall thickening [Unknown]
  - Fatigue [Unknown]
  - Pyoderma gangrenosum [Unknown]
  - Crohn^s disease [Unknown]
  - Gastrointestinal wall thickening [Unknown]
  - Nausea [Unknown]
  - Mesenteritis [Unknown]

NARRATIVE: CASE EVENT DATE: 20120101
